FAERS Safety Report 6807873-3 (Version None)
Quarter: 2010Q2

REPORT INFORMATION
  Report Type: 
  Country: None (occurrence: None)
  Receive Date: 20100629
  Receipt Date: 20090318
  Transmission Date: 20101027
  Serious: No
  Sender: FDA-Public Use
  Company Number: US-PFIZER INC-2009152862

PATIENT
  Sex: Male
  Weight: 107 kg

DRUGS (2)
  1. VIAGRA [Suspect]
     Indication: ERECTILE DYSFUNCTION
     Dosage: 25 MG, AS NEEDED
     Route: 048
     Dates: start: 20040101
  2. ATENOLOL [Concomitant]
     Indication: HYPERTENSION
     Dosage: 50 MG, 1X/DAY
     Route: 048

REACTIONS (4)
  - CYANOPSIA [None]
  - ERYTHEMA [None]
  - FLUSHING [None]
  - HEADACHE [None]
